FAERS Safety Report 5688845-1 (Version None)
Quarter: 2008Q1

REPORT INFORMATION
  Report Type: 
  Country: None (occurrence: None)
  Receive Date: 20080331
  Receipt Date: 20031006
  Transmission Date: 20080703
  Serious: Yes (Death, Hospitalization)
  Sender: FDA-Public Use
  Company Number: TN-ROCHE-348411

PATIENT
  Age: 64 Year
  Sex: Female

DRUGS (5)
  1. TICLID [Suspect]
     Indication: ANGIOPLASTY
     Route: 048
     Dates: start: 20030612, end: 20030617
  2. TRIATEC [Concomitant]
     Indication: DRUG USE FOR UNKNOWN INDICATION
     Route: 048
  3. LOPRESSOR [Concomitant]
     Indication: DRUG USE FOR UNKNOWN INDICATION
     Route: 048
     Dates: end: 20030806
  4. ASPEGIC 1000 [Concomitant]
     Indication: ANGIOPLASTY
     Route: 048
     Dates: start: 20030612, end: 20030806
  5. CORVASAL (MOLSIDOMINE) [Concomitant]
     Indication: ANGIOPLASTY
     Route: 048
     Dates: start: 20030612, end: 20030806

REACTIONS (2)
  - DEATH [None]
  - HEPATITIS CHOLESTATIC [None]
